FAERS Safety Report 4562881-0 (Version None)
Quarter: 2005Q1

REPORT INFORMATION
  Report Type: 
  Country: None (occurrence: None)
  Receive Date: 20050121
  Receipt Date: 20050111
  Transmission Date: 20050727
  Serious: Yes (Other)
  Sender: FDA-Public Use
  Company Number: 2005011644

PATIENT
  Sex: Male
  Weight: 80 kg

DRUGS (8)
  1. NEURONTIN [Suspect]
     Indication: ILL-DEFINED DISORDER
     Dosage: 3.6 GRAM, ORAL  : 3.2 GRAM (INTERVAL: DAILY) ORAL
     Route: 048
  2. ESOMEPRAZOLE [Concomitant]
  3. CELECOXIB [Concomitant]
  4. MOXIFLOXACIN HYDROCHLORIDE [Concomitant]
  5. FERROUS SULFATE TAB [Concomitant]
  6. SUPRADYN (FERROUS CARBONATE, MAGNESIUM PHOSPHATE MONOBASIC, MANGANESE [Concomitant]
  7. HERBAL PREPARATION [Concomitant]
  8. MORPHINE SULFATE [Concomitant]

REACTIONS (8)
  - ANAEMIA [None]
  - DRUG INTERACTION [None]
  - FATIGUE [None]
  - HYPERHIDROSIS [None]
  - LIVER DISORDER [None]
  - PNEUMONIA [None]
  - RENAL DISORDER [None]
  - STEVENS-JOHNSON SYNDROME [None]
